FAERS Safety Report 6304412-0 (Version None)
Quarter: 2009Q3

REPORT INFORMATION
  Report Type: 
  Country: None (occurrence: None)
  Receive Date: 20090811
  Receipt Date: 20090731
  Transmission Date: 20100115
  Serious: Yes (Other)
  Sender: FDA-Public Use
  Company Number: PHEH2009US06273

PATIENT
  Sex: Female
  Weight: 63.492 kg

DRUGS (17)
  1. RECLAST [Suspect]
     Indication: OSTEOPOROSIS
     Dosage: ANNUALLY
     Dates: start: 20090601
  2. HUMULIN 70/30 [Concomitant]
     Dosage: 50 U QAM, 32 U QPM
  3. METFORMIN [Concomitant]
     Dosage: 500 MG, BID
  4. GLIPIZIDE [Concomitant]
     Dosage: 5 MG, BID
     Route: 048
  5. ENALAPRIL MALEATE [Concomitant]
     Dosage: 10 MG, BID
     Route: 048
  6. HYDROCHLOROTHIAZIDE [Concomitant]
     Dosage: 12.5 MG, QAM
     Route: 048
  7. LEVOTHYROXINE SODIUM [Concomitant]
     Dosage: 0.025 MG, QAM
     Route: 048
  8. ISOSORBIDE [Concomitant]
     Dosage: 60 MG, QAM
     Route: 048
  9. FOLIC ACID [Concomitant]
     Dosage: 2 MG, QAM
     Route: 048
  10. BISOPROLOL [Concomitant]
     Dosage: 10 MG, QHS
     Route: 048
  11. SIMVASTATIN [Concomitant]
     Dosage: 40 MG, QD
     Route: 048
  12. CALCIUM W/VITAMIN D NOS [Concomitant]
     Dosage: 600 MG AT NOON AND HS
  13. ASPIRIN [Concomitant]
     Dosage: 81 MG, QHS
     Route: 048
  14. PLAVIX [Concomitant]
     Dosage: 75 MG, QD
     Route: 048
  15. FUROSEMIDE [Concomitant]
     Dosage: 20 MG, QOD
     Route: 048
  16. NIFEDIPINE [Concomitant]
     Dosage: 30 MG, QD
     Route: 048
  17. NITROGLYCERIN [Concomitant]
     Dosage: 1/150 GR PRN
     Route: 060

REACTIONS (14)
  - ABASIA [None]
  - ASTHENIA [None]
  - BLOOD GLUCOSE DECREASED [None]
  - CONFUSIONAL STATE [None]
  - DISORIENTATION [None]
  - FALL [None]
  - FATIGUE [None]
  - FEELING ABNORMAL [None]
  - HYPERSOMNIA [None]
  - MUSCULAR WEAKNESS [None]
  - MUSCULOSKELETAL PAIN [None]
  - PAIN [None]
  - PAIN IN EXTREMITY [None]
  - THIRST [None]
